FAERS Safety Report 11119237 (Version 1)
Quarter: 2015Q2

REPORT INFORMATION
  Report Type: Spontaneous
  Country: US (occurrence: US)
  Receive Date: 20150518
  Receipt Date: 20150518
  Transmission Date: 20150821
  Serious: No
  Sender: FDA-Public Use
  Company Number: US-PFIZER INC-2015165799

PATIENT
  Sex: Male

DRUGS (1)
  1. EFFEXOR XR [Suspect]
     Active Substance: VENLAFAXINE HYDROCHLORIDE
     Dosage: UNK, 1X/DAY (IN THE AM)

REACTIONS (7)
  - Cough [Unknown]
  - Vision blurred [Unknown]
  - Yawning [Unknown]
  - Halo vision [Unknown]
  - Insomnia [Unknown]
  - Dry mouth [Unknown]
  - Condition aggravated [Unknown]
